FAERS Safety Report 9520472 (Version 2)
Quarter: 2014Q2

REPORT INFORMATION
  Report Type: Spontaneous
  Country: IT (occurrence: IT)
  Receive Date: 20130913
  Receipt Date: 20140424
  Transmission Date: 20141212
  Serious: Yes (Other)
  Sender: FDA-Public Use
  Company Number: IT-MYLANLABS-2013S1019825

PATIENT
  Age: 30 Year
  Sex: Female

DRUGS (2)
  1. DICLOFENAC [Suspect]
     Indication: TENDONITIS
     Dates: start: 20130827, end: 20130829
  2. ARTROXICAM /00500401/ [Suspect]
     Indication: TENDONITIS
     Route: 061
     Dates: start: 20130827, end: 20130829

REACTIONS (1)
  - Lip oedema [Recovered/Resolved]
